FAERS Safety Report 5290017-X (Version None)
Quarter: 2007Q1

REPORT INFORMATION
  Report Type: 
  Country: None (occurrence: None)
  Receive Date: 20070116
  Receipt Date: 20051219
  Transmission Date: 20070707
  Serious: Yes (Other)
  Sender: FDA-Public Use
  Company Number: HQWYE323008JUN05

PATIENT
  Age: 56 Year
  Sex: Female
  Weight: 56.75 kg

DRUGS (7)
  1. PREMPRO [Suspect]
  2. ESTRACE [Suspect]
  3. ESTRING [Suspect]
  4. FEHMRT (NORETHINDRONE ACETATE/ETHINYL ESTRADIOL, ) [Suspect]
  5. PREMARIN [Suspect]
  6. PREMARIN [Suspect]
  7. PROVERA [Suspect]

REACTIONS (1)
  - BREAST CANCER [None]
